FAERS Safety Report 21171725 (Version 1)
Quarter: 2022Q3

REPORT INFORMATION
  Report Type: Spontaneous
  Country: FR (occurrence: FR)
  Receive Date: 20220804
  Receipt Date: 20220804
  Transmission Date: 20221026
  Serious: Yes (Life-Threatening, Other)
  Sender: FDA-Public Use
  Company Number: FR-SA-2022SA304545

PATIENT
  Age: 35 Year
  Sex: Male
  Weight: 70 kg

DRUGS (7)
  1. VALIUM [Suspect]
     Active Substance: DIAZEPAM
     Indication: Psychotic disorder
     Dosage: 30 MG, QD
     Route: 050
  2. LOXAPINE [Suspect]
     Active Substance: LOXAPINE
     Indication: Psychotic disorder
     Dosage: 50 MG
     Route: 050
  3. MILNACIPRAN HYDROCHLORIDE [Suspect]
     Active Substance: MILNACIPRAN HYDROCHLORIDE
     Indication: Psychotic disorder
     Dosage: 25 MG
     Route: 050
  4. MILNACIPRAN [Suspect]
     Active Substance: MILNACIPRAN
     Indication: Psychotic disorder
     Dosage: UNK
  5. LEVOMEPROMAZINE [Suspect]
     Active Substance: LEVOMEPROMAZINE
     Indication: Psychotic disorder
     Dosage: 25 MG, RECEIVED AT THE DOSE OF 87.5 MG, QD
     Route: 050
  6. VALPROATE SODIUM [Suspect]
     Active Substance: VALPROATE SODIUM
     Indication: Psychotic disorder
     Dosage: 1G, QD
  7. QUETIAPINE [Suspect]
     Active Substance: QUETIAPINE
     Indication: Psychotic disorder
     Dosage: 950 MG, QD
     Route: 050

REACTIONS (4)
  - Intestinal obstruction [Recovered/Resolved]
  - Product use in unapproved indication [Recovered/Resolved]
  - Drug interaction [Recovered/Resolved]
  - Off label use [Unknown]

NARRATIVE: CASE EVENT DATE: 20211208
